FAERS Safety Report 5660973-6 (Version None)
Quarter: 2008Q1

REPORT INFORMATION
  Report Type: 
  Country: None (occurrence: None)
  Receive Date: 20080311
  Receipt Date: 20080306
  Transmission Date: 20080703
  Serious: Yes (Death, Other)
  Sender: FDA-Public Use
  Company Number: HU-PFIZER INC-2006124936

PATIENT
  Age: 79 Year
  Sex: Male
  Weight: 82 kg

DRUGS (1)
  1. EPIRUBICIN HYDROCHLORIDE SOLUTION, STERILE [Suspect]
     Indication: BLADDER CANCER
     Route: 050
     Dates: start: 20040714, end: 20050217

REACTIONS (2)
  - DEATH [None]
  - METASTASES TO LIVER [None]
